FAERS Safety Report 25121417 (Version 1)
Quarter: 2025Q1

REPORT INFORMATION
  Report Type: Spontaneous
  Country: US (occurrence: US)
  Receive Date: 20250326
  Receipt Date: 20250326
  Transmission Date: 20250409
  Serious: No
  Sender: APOTEX
  Company Number: US-APOTEX-2025AP003668

PATIENT
  Age: 66 Year
  Sex: Female

DRUGS (2)
  1. GABAPENTIN [Suspect]
     Active Substance: GABAPENTIN
     Indication: Erythromelalgia
     Route: 065
  2. PIMOZIDE [Suspect]
     Active Substance: PIMOZIDE
     Indication: Erythromelalgia
     Route: 065

REACTIONS (1)
  - Adverse drug reaction [Unknown]
